FAERS Safety Report 4881357-4 (Version None)
Quarter: 2006Q1

REPORT INFORMATION
  Report Type: 
  Country: None (occurrence: None)
  Receive Date: 20060111
  Receipt Date: 20060111
  Transmission Date: 20060701
  Serious: Yes (Hospitalization)
  Sender: FDA-Public Use
  Company Number: None

PATIENT
  Sex: Male

DRUGS (1)
  1. LEVAQUIN [Suspect]
     Indication: PNEUMONIA
     Dosage: 500 PO DAILY
     Route: 048
     Dates: start: 20060104

REACTIONS (3)
  - DIZZINESS [None]
  - PARAESTHESIA [None]
  - URTICARIA [None]
